FAERS Safety Report 9718820 (Version 2)
Quarter: 2013Q4

REPORT INFORMATION
  Report Type: Report from Study
  Country: IN (occurrence: IN)
  Receive Date: 20131127
  Receipt Date: 20131210
  Transmission Date: 20140711
  Serious: Yes (Death, Hospitalization)
  Sender: FDA-Public Use
  Company Number: IN-GLAXOSMITHKLINE-B0948418A

PATIENT
  Age: 61 Year
  Sex: Female

DRUGS (2)
  1. VOTRIENT [Suspect]
     Indication: RENAL CELL CARCINOMA
     Dosage: 400MG PER DAY
     Route: 065
  2. AMLODIPINE [Concomitant]
     Indication: HYPERTENSION

REACTIONS (4)
  - Renal failure [Unknown]
  - Respiratory tract infection [Unknown]
  - Vomiting [Unknown]
  - Disease progression [Fatal]
